FAERS Safety Report 14147731 (Version 2)
Quarter: 2017Q4

REPORT INFORMATION
  Report Type: Other
  Country: US (occurrence: US)
  Receive Date: 20171101
  Receipt Date: 20171101
  Transmission Date: 20180321
  Serious: No
  Sender: FDA-Public Use
  Company Number: US-ALEMBIC PHARMACUETICALS LIMITED-2017SCAL000799

PATIENT

DRUGS (1)
  1. OLMESARTAN MEDOXIMIL [Suspect]
     Active Substance: OLMESARTAN MEDOXOMIL
     Indication: HYPERTENSION
     Dosage: 20 MG

REACTIONS (1)
  - Drug ineffective [Unknown]
